FAERS Safety Report 12511427 (Version 3)
Quarter: 2017Q1

REPORT INFORMATION
  Report Type: Report from Study
  Country: JP (occurrence: JP)
  Receive Date: 20160629
  Receipt Date: 20170309
  Transmission Date: 20170428
  Serious: Yes (Hospitalization, Other)
  Sender: FDA-Public Use
  Company Number: JP-AMGEN-JPNNI2016084481

PATIENT
  Age: 73 Year
  Sex: Male

DRUGS (1)
  1. DARBEPOETIN ALFA [Suspect]
     Active Substance: DARBEPOETIN ALFA
     Indication: PRODUCT USED FOR UNKNOWN INDICATION
     Dosage: UNK
     Route: 042
     Dates: start: 20160112

REACTIONS (5)
  - Hospitalisation [Recovering/Resolving]
  - End stage renal disease [Recovering/Resolving]
  - Hospitalisation [Recovering/Resolving]
  - Arteriovenous fistula site complication [Recovering/Resolving]
  - Azotaemia [Recovering/Resolving]

NARRATIVE: CASE EVENT DATE: 20160122
